FAERS Safety Report 6571814-7 (Version None)
Quarter: 2010Q1

REPORT INFORMATION
  Report Type: 
  Country: None (occurrence: None)
  Receive Date: 20100205
  Receipt Date: 20100126
  Transmission Date: 20100710
  Serious: Yes (Other)
  Sender: FDA-Public Use
  Company Number: FI-JNJFOC-20100110634

PATIENT
  Sex: Female
  Weight: 3.27 kg

DRUGS (8)
  1. REMICADE [Suspect]
     Indication: DRUG EXPOSURE DURING PREGNANCY
     Route: 042
  2. REMICADE [Suspect]
     Route: 042
  3. REMICADE [Suspect]
     Route: 042
  4. REMICADE [Suspect]
     Route: 042
  5. REMICADE [Suspect]
     Route: 042
  6. ALBETOL [Concomitant]
     Indication: DRUG EXPOSURE DURING PREGNANCY
  7. SOLU-CORTEF [Concomitant]
     Indication: DRUG EXPOSURE DURING PREGNANCY
     Route: 042
  8. PANADOL [Concomitant]
     Indication: DRUG EXPOSURE DURING PREGNANCY

REACTIONS (3)
  - CARDIAC PERFORATION [None]
  - CORONARY ARTERY PERFORATION [None]
  - FOETAL HEART RATE ABNORMAL [None]
